FAERS Safety Report 5406399-1 (Version None)
Quarter: 2007Q3

REPORT INFORMATION
  Report Type: 
  Country: None (occurrence: None)
  Receive Date: 20070806
  Receipt Date: 20070730
  Transmission Date: 20080115
  Serious: Yes (Hospitalization)
  Sender: FDA-Public Use
  Company Number: JP-BOEHRINGER INGELHEIM PHARMACEUTICALS, INC.-2007-BP-18269NB

PATIENT
  Sex: Male

DRUGS (8)
  1. PRAMIPEXOLE DIHYDROCHLORIDE [Suspect]
     Indication: PARKINSON'S DISEASE
     Route: 048
     Dates: start: 20070601, end: 20070606
  2. CARBIDOPA AND LEVODOPA [Concomitant]
     Indication: PARKINSON'S DISEASE
     Route: 048
  3. MICARDIS [Concomitant]
     Indication: HYPERTENSION
     Route: 048
  4. AMARYL [Concomitant]
     Route: 048
  5. FAMOTIDINE [Concomitant]
     Route: 048
  6. LASIX [Concomitant]
     Route: 048
  7. ASPIRIN [Concomitant]
     Route: 048
  8. LOXONIN (LOXOPROFEN SODIUM) [Concomitant]
     Route: 048

REACTIONS (6)
  - ALTERED STATE OF CONSCIOUSNESS [None]
  - BLOOD CREATINE PHOSPHOKINASE INCREASED [None]
  - DRY MOUTH [None]
  - NAUSEA [None]
  - RHABDOMYOLYSIS [None]
  - TREMOR [None]
